FAERS Safety Report 14820989 (Version 1)
Quarter: 2018Q2

REPORT INFORMATION
  Report Type: Spontaneous
  Country: FR (occurrence: FR)
  Receive Date: 20180427
  Receipt Date: 20180427
  Transmission Date: 20180711
  Serious: Yes (Life-Threatening)
  Sender: FDA-Public Use
  Company Number: FR-PFIZER INC-2018173423

PATIENT
  Age: 74 Year
  Sex: Female
  Weight: 66 kg

DRUGS (9)
  1. XGEVA [Concomitant]
     Active Substance: DENOSUMAB
  2. SOLUPRED /00016201/ [Concomitant]
     Active Substance: PREDNISOLONE
  3. LEVOTHYROX [Concomitant]
     Active Substance: LEVOTHYROXINE
  4. TRAMADOL HCL [Concomitant]
     Active Substance: TRAMADOL HYDROCHLORIDE
  5. CALCIUM VITAMIN D3 [Concomitant]
  6. LASILIX [Concomitant]
     Active Substance: FUROSEMIDE
  7. IBRANCE [Suspect]
     Active Substance: PALBOCICLIB
     Indication: BREAST CANCER
     Dosage: 125 MG, DAILY 21/28 DAYS
     Route: 048
     Dates: start: 201709, end: 201803
  8. ALDACTONE [Concomitant]
     Active Substance: SPIRONOLACTONE
  9. FASLODEX [Suspect]
     Active Substance: FULVESTRANT
     Indication: BREAST CANCER
     Dosage: UNK
     Route: 030
     Dates: start: 201709

REACTIONS (2)
  - Transient ischaemic attack [Recovered/Resolved]
  - Thrombocytopenia [Unknown]

NARRATIVE: CASE EVENT DATE: 201803
